FAERS Safety Report 5851776-8 (Version None)
Quarter: 2008Q3

REPORT INFORMATION
  Report Type: 
  Country: None (occurrence: None)
  Receive Date: 20080820
  Receipt Date: 20080813
  Transmission Date: 20090109
  Serious: Yes (Other)
  Sender: FDA-Public Use
  Company Number: US-JNJCH-2008021294

PATIENT
  Age: 69 Year
  Sex: Female
  Weight: 56.7 kg

DRUGS (1)
  1. LISTERINE WHITENING QUICK DISSOLVING STRIPS [Suspect]
     Indication: DENTAL CARE
     Dosage: TEXT:1 STRIP 2 X A DAY
     Route: 048
     Dates: start: 20080804, end: 20080807

REACTIONS (4)
  - APPLICATION SITE BURN [None]
  - OEDEMA MOUTH [None]
  - ORAL DISORDER [None]
  - ORAL INFECTION [None]
